FAERS Safety Report 24318409 (Version 1)
Quarter: 2024Q3

REPORT INFORMATION
  Report Type: Spontaneous
  Country: US (occurrence: US)
  Receive Date: 20240913
  Receipt Date: 20240913
  Transmission Date: 20241017
  Serious: No
  Sender: AMARIN
  Company Number: US-Amarin Pharma  Inc-2024AMR000405

PATIENT
  Age: 68 Year
  Sex: Male

DRUGS (1)
  1. VASCEPA [Suspect]
     Active Substance: ICOSAPENT ETHYL
     Indication: Blood cholesterol increased
     Dosage: 1 CAPSULE TWICE DAILY

REACTIONS (4)
  - Poor quality product administered [Unknown]
  - Prescribed underdose [Unknown]
  - Product coating issue [Unknown]
  - Product physical issue [Unknown]

NARRATIVE: CASE EVENT DATE: 20240701
